FAERS Safety Report 12213526 (Version 1)
Quarter: 2016Q1

REPORT INFORMATION
  Report Type: Other
  Country: TR (occurrence: TR)
  Receive Date: 20160328
  Receipt Date: 20160328
  Transmission Date: 20160526
  Serious: Yes (Hospitalization)
  Sender: FDA-Public Use
  Company Number: TR-DEXPHARM-20160386

PATIENT
  Age: 45 Year
  Sex: Male

DRUGS (3)
  1. PANTOPRAZOLE [Interacting]
     Active Substance: PANTOPRAZOLE SODIUM
     Indication: DYSPEPSIA
     Dosage: 40MG ONCE DAILY
  2. DICLOFENAC [Interacting]
     Active Substance: DICLOFENAC
     Indication: TENSION HEADACHE
     Dosage: 50MG ONCE DAILY
  3. DICLOFENAC [Suspect]
     Active Substance: DICLOFENAC
     Indication: PAIN IN EXTREMITY
     Dosage: 50MG TWICE DAILY

REACTIONS (3)
  - Drug interaction [Recovered/Resolved]
  - Dyspepsia [Recovered/Resolved]
  - Rhabdomyolysis [Recovered/Resolved]
